FAERS Safety Report 10300110 (Version 1)
Quarter: 2014Q3

REPORT INFORMATION
  Report Type: Spontaneous
  Country: TR (occurrence: TR)
  Receive Date: 20140711
  Receipt Date: 20140711
  Transmission Date: 20150326
  Serious: Yes (Death)
  Sender: FDA-Public Use
  Company Number: TR-VIIV HEALTHCARE LIMITED-B1013064A

PATIENT
  Age: 39 Year
  Sex: Female

DRUGS (6)
  1. LAMIVUDINE AND ZIDOVUDINE [Suspect]
     Active Substance: LAMIVUDINE\ZIDOVUDINE
     Indication: HIV INFECTION
     Route: 065
     Dates: start: 200806, end: 200810
  2. LOPINAVIR + RITONAVIR [Suspect]
     Active Substance: LOPINAVIR\RITONAVIR
     Indication: HIV INFECTION
     Route: 065
     Dates: start: 200806, end: 200810
  3. VINCRISTINE [Suspect]
     Active Substance: VINCRISTINE
     Indication: BURKITT^S LEUKAEMIA
     Route: 065
     Dates: start: 200806
  4. DOXORUBICIN [Suspect]
     Active Substance: DOXORUBICIN
     Indication: BURKITT^S LEUKAEMIA
     Route: 065
     Dates: start: 200806
  5. CYCLOPHOSPHAMIDE. [Suspect]
     Active Substance: CYCLOPHOSPHAMIDE
     Indication: BURKITT^S LEUKAEMIA
     Route: 065
     Dates: start: 200806
  6. DEXAMETHASONE. [Suspect]
     Active Substance: DEXAMETHASONE
     Indication: BURKITT^S LEUKAEMIA
     Route: 065
     Dates: start: 200806

REACTIONS (10)
  - Immune reconstitution inflammatory syndrome [Unknown]
  - Eyelid ptosis [Unknown]
  - Skin lesion [Unknown]
  - Hepatosplenomegaly [Unknown]
  - VIIth nerve paralysis [Unknown]
  - Histiocytosis haematophagic [Unknown]
  - Pancytopenia [Unknown]
  - Blood lactate dehydrogenase increased [Unknown]
  - Multi-organ failure [Fatal]
  - Gingivitis ulcerative [Unknown]
